FAERS Safety Report 12136645 (Version 1)
Quarter: 2016Q1

REPORT INFORMATION
  Report Type: Spontaneous
  Country: GB (occurrence: GB)
  Receive Date: 20160302
  Receipt Date: 20160302
  Transmission Date: 20160526
  Serious: Yes (Other)
  Sender: FDA-Public Use
  Company Number: GB-TEVA-638500ACC

PATIENT
  Age: 55 Year
  Sex: Female

DRUGS (7)
  1. COCODAMOL [Concomitant]
     Active Substance: ACETAMINOPHEN\CODEINE PHOSPHATE
  2. AMITRIPTYLIN [Concomitant]
     Active Substance: AMITRIPTYLINE
  3. RANITIDINE [Concomitant]
     Active Substance: RANITIDINE\RANITIDINE HYDROCHLORIDE
  4. PERINDOPRIL [Concomitant]
     Active Substance: PERINDOPRIL
  5. FELODIPINE. [Concomitant]
     Active Substance: FELODIPINE
  6. INDAPAMIDE. [Concomitant]
     Active Substance: INDAPAMIDE
  7. GABAPENTIN. [Suspect]
     Active Substance: GABAPENTIN
     Indication: BACK PAIN
     Dosage: STARTED AFTER TAKING 6 TABLETS OVER 2 DAYS
     Route: 048
     Dates: start: 20160211, end: 20160214

REACTIONS (2)
  - Arthritis [Unknown]
  - Back pain [Recovering/Resolving]

NARRATIVE: CASE EVENT DATE: 20160211
